FAERS Safety Report 6508534-0 (Version None)
Quarter: 2009Q4

REPORT INFORMATION
  Report Type: 
  Country: None (occurrence: None)
  Receive Date: 20091221
  Receipt Date: 20081118
  Transmission Date: 20100525
  Serious: No
  Sender: FDA-Public Use
  Company Number: US-ASTRAZENECA-2008UW25870

PATIENT
  Age: 67 Year
  Sex: Female
  Weight: 89.8 kg

DRUGS (13)
  1. CRESTOR [Suspect]
     Indication: BLOOD TRIGLYCERIDES INCREASED
     Route: 048
  2. CRESTOR [Suspect]
     Indication: BLOOD CHOLESTEROL INCREASED
     Route: 048
  3. CRESTOR [Suspect]
     Route: 048
  4. CRESTOR [Suspect]
     Route: 048
  5. COENZYME A [Concomitant]
  6. PLAVIX [Concomitant]
  7. TYLENOL (CAPLET) [Concomitant]
  8. CENTRUM [Concomitant]
  9. VITAMIN B COMPLEX CAP [Concomitant]
  10. POTASSIUM [Concomitant]
  11. TRIAMTERENE [Concomitant]
     Indication: FLUID RETENTION
  12. DIOVAN [Concomitant]
  13. VITAMIN D [Concomitant]

REACTIONS (2)
  - INSOMNIA [None]
  - MYALGIA [None]
